FAERS Safety Report 22339664 (Version 1)
Quarter: 2023Q2

REPORT INFORMATION
  Report Type: Report from Study
  Country: FR (occurrence: FR)
  Receive Date: 20230518
  Receipt Date: 20230518
  Transmission Date: 20230722
  Serious: Yes (Hospitalization, Other)
  Sender: FDA-Public Use
  Company Number: FR-JNJFOC-20210916204

PATIENT
  Age: 16 Year
  Sex: Female
  Weight: 38.8 kg

DRUGS (27)
  1. PLACEBO [Suspect]
     Active Substance: UNSPECIFIED INGREDIENT
     Indication: Major depression
     Dates: start: 20210401, end: 20210426
  2. PLACEBO [Suspect]
     Active Substance: UNSPECIFIED INGREDIENT
     Indication: Suicidal ideation
  3. ANETHOLTRITHION [Concomitant]
     Active Substance: ANETHOLTRITHION
     Indication: Prophylaxis
     Route: 048
     Dates: start: 20210408, end: 20210613
  4. ANETHOLTRITHION [Concomitant]
     Active Substance: ANETHOLTRITHION
     Route: 048
     Dates: start: 20210614
  5. ZOLPIDEM [Concomitant]
     Active Substance: ZOLPIDEM TARTRATE
     Indication: Sleep disorder
     Route: 048
     Dates: start: 20210331, end: 20210416
  6. FLUOXETINE [Concomitant]
     Active Substance: FLUOXETINE HYDROCHLORIDE
     Indication: Major depression
     Route: 048
     Dates: start: 20210428, end: 20210908
  7. FLUOXETINE [Concomitant]
     Active Substance: FLUOXETINE HYDROCHLORIDE
     Route: 048
     Dates: start: 20210402, end: 20210415
  8. FLUOXETINE [Concomitant]
     Active Substance: FLUOXETINE HYDROCHLORIDE
     Route: 048
     Dates: start: 20210416, end: 20210427
  9. FLUOXETINE [Concomitant]
     Active Substance: FLUOXETINE HYDROCHLORIDE
     Route: 048
     Dates: start: 20210914, end: 20210916
  10. PRAZEPAM [Concomitant]
     Active Substance: PRAZEPAM
     Indication: Panic attack
     Route: 048
     Dates: start: 20210520, end: 20210613
  11. PRAZEPAM [Concomitant]
     Active Substance: PRAZEPAM
     Indication: Anxiety
     Route: 048
     Dates: start: 20210614, end: 20210802
  12. PRAZEPAM [Concomitant]
     Active Substance: PRAZEPAM
     Route: 048
     Dates: start: 20210803
  13. FUMARATE FERREUX TM [Concomitant]
     Indication: Anaemia
     Route: 048
     Dates: start: 20210520
  14. CYAMEMAZINE [Concomitant]
     Active Substance: CYAMEMAZINE
     Indication: Panic attack
     Route: 048
     Dates: start: 20210525, end: 20210802
  15. CYAMEMAZINE [Concomitant]
     Active Substance: CYAMEMAZINE
     Indication: Anxiety
     Route: 048
     Dates: start: 20210803, end: 20210903
  16. CYAMEMAZINE [Concomitant]
     Active Substance: CYAMEMAZINE
     Route: 048
     Dates: start: 20210904, end: 20210912
  17. CYAMEMAZINE [Concomitant]
     Active Substance: CYAMEMAZINE
     Route: 048
     Dates: start: 20210913, end: 20210927
  18. MIRTAZAPINE [Concomitant]
     Active Substance: MIRTAZAPINE
     Indication: Panic attack
     Route: 048
     Dates: start: 20210608, end: 20210909
  19. MIRTAZAPINE [Concomitant]
     Active Substance: MIRTAZAPINE
     Indication: Anxiety
     Route: 048
     Dates: start: 20210910
  20. MELATONIN [Concomitant]
     Active Substance: MELATONIN
     Indication: Panic attack
     Route: 048
     Dates: start: 20210803, end: 20211011
  21. MELATONIN [Concomitant]
     Active Substance: MELATONIN
     Indication: Anxiety
     Route: 048
     Dates: start: 20211012
  22. ALPRAZOLAM [Concomitant]
     Active Substance: ALPRAZOLAM
     Indication: Panic attack
     Route: 048
     Dates: start: 20210614, end: 20210908
  23. ALPRAZOLAM [Concomitant]
     Active Substance: ALPRAZOLAM
     Indication: Anxiety
  24. CHLORPROMAZINE [Concomitant]
     Active Substance: CHLORPROMAZINE
     Indication: Panic attack
     Route: 048
     Dates: start: 20210927, end: 20210930
  25. CHLORPROMAZINE [Concomitant]
     Active Substance: CHLORPROMAZINE
     Indication: Anxiety
     Route: 048
     Dates: start: 20211001, end: 20211011
  26. QUETIAPINE [Concomitant]
     Active Substance: QUETIAPINE
     Indication: Major depression
     Route: 048
     Dates: start: 20211005, end: 20211011
  27. QUETIAPINE [Concomitant]
     Active Substance: QUETIAPINE
     Route: 048
     Dates: start: 20211012

REACTIONS (1)
  - Suicide attempt [Recovered/Resolved]

NARRATIVE: CASE EVENT DATE: 20210903
